FAERS Safety Report 12138591 (Version 2)
Quarter: 2016Q2

REPORT INFORMATION
  Report Type: Spontaneous
  Country: US (occurrence: US)
  Receive Date: 20160302
  Receipt Date: 20160407
  Transmission Date: 20160815
  Serious: Yes (Other)
  Sender: FDA-Public Use
  Company Number: US-TEVA-640228USA

PATIENT
  Sex: Male

DRUGS (3)
  1. FOLINIC ACID [Suspect]
     Active Substance: LEUCOVORIN
     Indication: ADENOCARCINOMA OF COLON
     Route: 065
     Dates: start: 2015, end: 20160111
  2. IRINOTECAN [Suspect]
     Active Substance: IRINOTECAN
     Indication: ADENOCARCINOMA OF COLON
     Route: 065
     Dates: start: 2015, end: 20160111
  3. FLUOROURACIL. [Suspect]
     Active Substance: FLUOROURACIL
     Indication: ADENOCARCINOMA OF COLON
     Route: 065
     Dates: start: 2015, end: 20160111

REACTIONS (2)
  - Peritoneal neoplasm [Recovering/Resolving]
  - Adenocarcinoma [Recovering/Resolving]

NARRATIVE: CASE EVENT DATE: 2016
